FAERS Safety Report 22625833 (Version 1)
Quarter: 2023Q2

REPORT INFORMATION
  Report Type: Spontaneous
  Country: CN (occurrence: CN)
  Receive Date: 20230621
  Receipt Date: 20230621
  Transmission Date: 20230721
  Serious: Yes (Other)
  Sender: FDA-Public Use
  Company Number: CN-BAYER-2023A085977

PATIENT
  Age: 66 Year
  Sex: Male

DRUGS (3)
  1. ULTRAVIST [Suspect]
     Active Substance: IOPROMIDE
     Dosage: 80 ML, ONCE
  2. ULTRAVIST [Suspect]
     Active Substance: IOPROMIDE
     Dosage: 60 ML, ONCE
  3. TIROFIBAN [Concomitant]
     Active Substance: TIROFIBAN

REACTIONS (4)
  - Contrast encephalopathy [Recovered/Resolved]
  - Status epilepticus [Recovered/Resolved]
  - Loss of consciousness [Recovered/Resolved]
  - Contrast media deposition [Recovered/Resolved]
